FAERS Safety Report 5792616-5 (Version None)
Quarter: 2008Q2

REPORT INFORMATION
  Report Type: 
  Country: None (occurrence: None)
  Receive Date: 20080626
  Receipt Date: 20080618
  Transmission Date: 20081010
  Serious: Yes (Disabling)
  Sender: FDA-Public Use
  Company Number: GB-PFIZER INC-2008051939

PATIENT
  Age: 57 Year
  Sex: Male

DRUGS (2)
  1. CHANTIX [Suspect]
     Indication: SMOKING CESSATION THERAPY
     Route: 048
     Dates: start: 20071218, end: 20080318
  2. DOXYCYCLINE [Concomitant]
     Route: 048
     Dates: start: 20080130, end: 20080214

REACTIONS (3)
  - DEPRESSED MOOD [None]
  - FATIGUE [None]
  - SOCIAL AVOIDANT BEHAVIOUR [None]
